FAERS Safety Report 7903549-X (Version None)
Quarter: 2011Q4

REPORT INFORMATION
  Report Type: 
  Country: None (occurrence: None)
  Receive Date: 20111109
  Receipt Date: 20111109
  Transmission Date: 20120403
  Serious: Yes (Death, Other)
  Sender: FDA-Public Use
  Company Number: None

PATIENT
  Age: 27 Year
  Sex: Female
  Weight: 61.234 kg

DRUGS (2)
  1. YAZ [Suspect]
     Indication: HAEMORRHAGE
     Dates: start: 20070729, end: 20090825
  2. YAZ [Suspect]
     Indication: CONTRACEPTION
     Dates: start: 20070729, end: 20090825

REACTIONS (18)
  - AGORAPHOBIA [None]
  - VOMITING [None]
  - ACTIVITIES OF DAILY LIVING IMPAIRED [None]
  - LOSS OF EMPLOYMENT [None]
  - PALPITATIONS [None]
  - COMPLETED SUICIDE [None]
  - PANIC ATTACK [None]
  - INSOMNIA [None]
  - IMPAIRED WORK ABILITY [None]
  - BLOOD PRESSURE INCREASED [None]
  - ANGER [None]
  - DEPRESSION [None]
  - HEPATIC STEATOSIS [None]
  - RENAL FAILURE [None]
  - MEMORY IMPAIRMENT [None]
  - HEART RATE INCREASED [None]
  - ABDOMINAL DISCOMFORT [None]
  - ABDOMINAL PAIN [None]
